FAERS Safety Report 8661200 (Version 3)
Quarter: 2013Q4

REPORT INFORMATION
  Report Type: Report from Study
  Country: JP (occurrence: JP)
  Receive Date: 20120712
  Receipt Date: 20131217
  Transmission Date: 20140711
  Serious: Yes (Life-Threatening, Hospitalization)
  Sender: FDA-Public Use
  Company Number: JP-009507513-1204USA01149

PATIENT
  Age: 70 Year
  Sex: Female

DRUGS (9)
  1. ZOLINZA CAPSULES 100MG [Suspect]
     Indication: MYCOSIS FUNGOIDES
     Dosage: 200 MG, QD
     Route: 048
     Dates: start: 20111118, end: 20111212
  2. PREDONINE [Concomitant]
     Indication: MYCOSIS FUNGOIDES
     Dosage: 10 MG, QD
     Route: 048
     Dates: start: 201112, end: 20111201
  3. PREDONINE [Concomitant]
     Dosage: 5 MG, QD
     Route: 048
     Dates: start: 20111202
  4. ALLELOCK [Concomitant]
     Indication: MYCOSIS FUNGOIDES
     Dosage: 5 MG, BID
     Route: 048
  5. BONALON [Concomitant]
     Indication: OSTEOPOROSIS PROPHYLAXIS
     Dosage: 35 MG, QW
     Route: 048
     Dates: start: 201012
  6. THYRADIN-S [Concomitant]
     Indication: HYPOTHYROIDISM
     Dosage: 25 MICROGRAM, QD
     Route: 048
  7. OLMETEC [Concomitant]
     Indication: HYPERTENSION
     Dosage: 20 MG, QD
     Route: 048
  8. AMLODIPINE BESYLATE [Concomitant]
     Indication: HYPERTENSION
     Dosage: 5 MG, QD
     Route: 048
  9. TAKEPRON [Concomitant]
     Indication: PROPHYLAXIS AGAINST GASTROINTESTINAL ULCER
     Dosage: 15 MG, QD
     Route: 048

REACTIONS (2)
  - Pyelonephritis [Recovering/Resolving]
  - Renal failure acute [Recovering/Resolving]
